FAERS Safety Report 6566515-5 (Version None)
Quarter: 2010Q1

REPORT INFORMATION
  Report Type: 
  Country: None (occurrence: None)
  Receive Date: 20100202
  Receipt Date: 20100120
  Transmission Date: 20100710
  Serious: Yes (Other)
  Sender: FDA-Public Use
  Company Number: PHEH2008US03980

PATIENT
  Sex: Female
  Weight: 96.599 kg

DRUGS (16)
  1. ZELNORM [Suspect]
     Indication: INTESTINAL FUNCTIONAL DISORDER
     Dosage: 6MG QD
     Route: 048
     Dates: start: 20060112, end: 20070701
  2. LORTAB [Concomitant]
     Dosage: UNK
  3. ASPIRIN [Concomitant]
     Dosage: UNK
  4. PREVACID [Concomitant]
     Dosage: UNK
  5. PROTONIX [Concomitant]
     Dosage: UNK
  6. DIOVAN [Concomitant]
     Dosage: 320
  7. POTASSIUM CHLORIDE [Concomitant]
     Dosage: 20MEQ QD
     Route: 048
  8. MEVACOR [Concomitant]
     Dosage: 20MG QD
     Route: 048
  9. ZANTAC [Concomitant]
     Dosage: 150MG BID
     Route: 048
  10. LISINOPRIL [Concomitant]
     Dosage: 20MG QD
     Route: 048
  11. NEXIUM [Concomitant]
     Dosage: 40 MG QD
     Route: 048
     Dates: start: 20070924
  12. REQUIP [Concomitant]
     Dosage: 0.5MG QD
     Route: 048
     Dates: start: 20070924
  13. CIPRO [Concomitant]
     Dosage: 500MG BID
     Route: 048
     Dates: start: 20070312
  14. FLAGYL [Concomitant]
     Dosage: 50MG BID
     Route: 048
     Dates: start: 20070312
  15. PHENERGAN ^AVENTIS PHARMA^ [Concomitant]
     Dosage: 25MG Q6HR PRN
     Route: 054
     Dates: start: 20070312
  16. TAGAMET [Concomitant]
     Dosage: 80MG BID
     Route: 048
     Dates: start: 20070312

REACTIONS (12)
  - ABDOMINAL DISTENSION [None]
  - ABDOMINAL PAIN [None]
  - BACK PAIN [None]
  - CHEST DISCOMFORT [None]
  - CHOLECYSTITIS [None]
  - CHOLELITHIASIS [None]
  - CONSTIPATION [None]
  - DIVERTICULITIS [None]
  - DRUG INEFFECTIVE [None]
  - FLANK PAIN [None]
  - NAUSEA [None]
  - VOMITING [None]
